FAERS Safety Report 17264172 (Version 2)
Quarter: 2020Q1

REPORT INFORMATION
  Report Type: Spontaneous
  Country: US (occurrence: US)
  Receive Date: 20200113
  Receipt Date: 20200210
  Transmission Date: 20200409
  Serious: Yes (Death, Other)
  Sender: FDA-Public Use
  Company Number: US-SA-2020SA007371

PATIENT
  Age: 52 Year
  Sex: Female

DRUGS (1)
  1. LEMTRADA [Suspect]
     Active Substance: ALEMTUZUMAB
     Indication: RELAPSING-REMITTING MULTIPLE SCLEROSIS
     Dosage: 12 MG, QD
     Route: 041
     Dates: start: 20181204, end: 20181210

REACTIONS (3)
  - Multiple sclerosis [Unknown]
  - Immune reconstitution inflammatory syndrome [Fatal]
  - Multiple sclerosis relapse [Unknown]

NARRATIVE: CASE EVENT DATE: 201907
